FAERS Safety Report 19055604 (Version 1)
Quarter: 2021Q1

REPORT INFORMATION
  Report Type: Report from Study
  Country: TW (occurrence: TW)
  Receive Date: 20210324
  Receipt Date: 20210324
  Transmission Date: 20210420
  Serious: Yes (Hospitalization)
  Sender: FDA-Public Use
  Company Number: TW-SA-2019SA044117

PATIENT
  Age: 36 Year
  Sex: Female
  Weight: 66.4 kg

DRUGS (13)
  1. ATEZOLIZUMAB. [Suspect]
     Active Substance: ATEZOLIZUMAB
     Dosage: 1200 MG, Q3W
     Route: 042
     Dates: start: 20181207, end: 20181207
  2. SENNOSIDE A+B [Concomitant]
     Active Substance: SENNOSIDES A AND B
     Indication: PROPHYLAXIS
     Dosage: UNK UNK, UNK
     Route: 048
     Dates: start: 20181218
  3. MAGNESIUM OXIDE. [Concomitant]
     Active Substance: MAGNESIUM OXIDE
     Indication: PROPHYLAXIS
     Dosage: UNK UNK, UNK
     Route: 048
     Dates: start: 20181218
  4. FENTANYL. [Concomitant]
     Active Substance: FENTANYL
     Indication: PROPHYLAXIS
     Dosage: 25MCG/HR
     Route: 061
     Dates: start: 20181224
  5. LIPASE [Concomitant]
     Active Substance: LIPASE
     Indication: PROPHYLAXIS
     Dosage: UNK UNK, UNK
     Route: 048
     Dates: start: 20190126
  6. ISATUXIMAB [Suspect]
     Active Substance: ISATUXIMAB
     Indication: OVARIAN CANCER STAGE III
     Dosage: 10 MG/KG, QOW
     Route: 042
  7. PROZYME 6 [Concomitant]
     Indication: PROPHYLAXIS
     Dosage: UNK UNK, UNK
     Route: 048
     Dates: start: 20190126
  8. ISATUXIMAB [Suspect]
     Active Substance: ISATUXIMAB
     Dosage: 10 MG/KG, QW
     Route: 042
     Dates: start: 20181207, end: 20181207
  9. CELECOXIB. [Concomitant]
     Active Substance: CELECOXIB
     Dosage: UNK UNK, UNK
     Route: 048
     Dates: start: 20181226
  10. CELLULASE AP 3 [Concomitant]
     Indication: PROPHYLAXIS
     Dosage: UNK UNK, UNK
     Route: 048
     Dates: start: 20190126
  11. ATEZOLIZUMAB. [Suspect]
     Active Substance: ATEZOLIZUMAB
     Indication: OVARIAN CANCER
     Dosage: 1200 MG, Q3W
     Route: 042
  12. TRAMADOL + ACETAMINOFEN [Concomitant]
     Active Substance: ACETAMINOPHEN\TRAMADOL
     Dosage: UNK UNK, UNK
     Route: 048
     Dates: start: 20181218
  13. BIODIASTASE 2000 [Concomitant]
     Indication: PROPHYLAXIS
     Dosage: UNK UNK, UNK
     Route: 048
     Dates: start: 20190126

REACTIONS (1)
  - Pulmonary embolism [Not Recovered/Not Resolved]

NARRATIVE: CASE EVENT DATE: 20190211
